FAERS Safety Report 10275756 (Version 4)
Quarter: 2015Q1

REPORT INFORMATION
  Report Type: Spontaneous
  Country: US (occurrence: US)
  Receive Date: 20140703
  Receipt Date: 20150327
  Transmission Date: 20150720
  Serious: Yes (Other)
  Sender: FDA-Public Use
  Company Number: US-BAYER-2014-100099

PATIENT
  Age: 55 Year
  Sex: Female
  Weight: 63.49 kg

DRUGS (1)
  1. YAZ [Suspect]
     Active Substance: DROSPIRENONE\ETHINYL ESTRADIOL
     Dosage: UNK
     Dates: start: 200803, end: 200810

REACTIONS (4)
  - Thrombophlebitis superficial [None]
  - Injury [None]
  - Pain [None]
  - Deep vein thrombosis [None]

NARRATIVE: CASE EVENT DATE: 20080825
